FAERS Safety Report 12598028 (Version 2)
Quarter: 2016Q3

REPORT INFORMATION
  Report Type: Report from Study
  Country: CA (occurrence: CA)
  Receive Date: 20160726
  Receipt Date: 20160921
  Transmission Date: 20161109
  Serious: Yes (Other)
  Sender: FDA-Public Use
  Company Number: CA-HLSUS-2016-CA-000218

PATIENT
  Age: 58 Year
  Sex: Male
  Weight: 86.64 kg

DRUGS (1)
  1. CLOZARIL [Suspect]
     Active Substance: CLOZAPINE
     Dosage: 350 MG QHS
     Route: 048
     Dates: start: 19970320

REACTIONS (6)
  - Skin abrasion [Unknown]
  - Head injury [Unknown]
  - Dizziness [Unknown]
  - Scab [Unknown]
  - Loss of consciousness [Unknown]
  - Eye contusion [Unknown]

NARRATIVE: CASE EVENT DATE: 20160607
